FAERS Safety Report 19659518 (Version 3)
Quarter: 2021Q3

REPORT INFORMATION
  Report Type: Report from Study
  Country: US (occurrence: US)
  Receive Date: 20210804
  Receipt Date: 20210922
  Transmission Date: 20211014
  Serious: No
  Sender: FDA-Public Use
  Company Number: NVSC2021US174976

PATIENT
  Age: 6 Year
  Sex: Male

DRUGS (2)
  1. ILARIS [Suspect]
     Active Substance: CANAKINUMAB
     Indication: PYREXIA
     Dosage: 80 MG/KG, Q3W (MILIGRAM/KILOGRAM)
     Route: 058
     Dates: start: 20201024
  2. ILARIS [Suspect]
     Active Substance: CANAKINUMAB
     Dosage: 150 MG, Q3W
     Route: 058
     Dates: start: 20201124

REACTIONS (3)
  - Accidental overdose [Unknown]
  - Medication error [Unknown]
  - Pain [Unknown]

NARRATIVE: CASE EVENT DATE: 20210904
